FAERS Safety Report 7294430-0 (Version None)
Quarter: 2011Q1

REPORT INFORMATION
  Report Type: 
  Country: None (occurrence: None)
  Receive Date: 20110215
  Receipt Date: 20110211
  Transmission Date: 20110831
  Serious: Yes (Hospitalization)
  Sender: FDA-Public Use
  Company Number: DE-BRISTOL-MYERS SQUIBB COMPANY-15459159

PATIENT
  Age: 61 Year
  Sex: Male

DRUGS (17)
  1. METFORMIN HCL [Suspect]
     Indication: DIABETES MELLITUS
     Dosage: INITIATED MORE THAN 3 MONTHS PRIOR TO STUDY START
     Route: 048
  2. AMLODIPINE [Concomitant]
     Indication: HYPERTENSION
     Route: 048
  3. BISOHEXAL [Concomitant]
     Indication: HYPERTENSION
     Route: 048
  4. ACTRAPID [Suspect]
     Indication: DIABETES MELLITUS
     Dosage: 1 DF = 84 UNIT NOT SPECIFIED(01JAN07-05SEP10),60(06SEP2010-21DEC10),54(22DEC10-ONG)
     Dates: start: 20070101
  5. TRAMADOL [Concomitant]
     Indication: PAIN
     Dosage: INITIATED MORE THAN 3 MONTHS PRIOR TO STUDY START
     Route: 048
  6. FLUOXETINE [Concomitant]
     Indication: DEPRESSION
     Dosage: INITIATED MORE THAN 3 MONTHS PRIOR TO STUDY START
     Route: 048
  7. SIMVASTATIN [Concomitant]
     Indication: HYPERCHOLESTEROLAEMIA
     Dosage: INITIATED MORE THAN 3 MONTHS PRIOR TO STUDY START
     Route: 048
  8. BLINDED: PLACEBO [Suspect]
     Indication: TYPE 2 DIABETES MELLITUS
     Route: 048
     Dates: start: 20100906, end: 20101221
  9. LANTUS [Suspect]
     Indication: DIABETES MELLITUS
     Dosage: 1 DF = 48 UNIT NOT SPECIFIED(01JAN07-05SEP10),40(06SEP10-21DEC10),48(22DEC10-ONG)
     Dates: start: 20070101
  10. SULPIRID [Concomitant]
     Indication: DEPRESSION
     Dosage: INITIATED MORE THAN 3 MONTHS PRIOR TO STUDY START
     Route: 048
  11. AMITRIPTYLINE HCL [Concomitant]
     Indication: DEPRESSION
     Dosage: INITIATED MORE THAN 3 MONTHS PRIOR TO STUDY START
     Route: 048
  12. TAMSULOSIN HCL [Concomitant]
     Indication: BENIGN PROSTATIC HYPERPLASIA
     Dosage: INITIATED MORE THAN 3 MONTHS PRIOR TO STUDY START
     Route: 048
  13. DICLOFENAC [Concomitant]
     Indication: PAIN
     Dosage: INITIATED MORE THAN 3 MONTHS PRIOR TO STUDY START
     Route: 048
  14. PARACETAMOL [Concomitant]
     Indication: PAIN
     Dosage: INITIATED MORE THAN 3 MONTHS PRIOR TO STUDY START
     Route: 048
  15. EPROSARTAN MESILATE [Concomitant]
     Indication: HYPERTENSION
     Route: 048
  16. BLINDED: DAPAGLIFLOZIN [Suspect]
     Indication: TYPE 2 DIABETES MELLITUS
     Route: 048
     Dates: start: 20100906, end: 20101221
  17. HYDROCHLOROTHIAZIDE [Concomitant]
     Indication: HYPERTENSION
     Route: 048

REACTIONS (1)
  - HYPOGLYCAEMIA [None]
